FAERS Safety Report 8517461-9 (Version None)
Quarter: 2012Q3

REPORT INFORMATION
  Report Type: 
  Country: None (occurrence: None)
  Receive Date: 20120718
  Receipt Date: 20120711
  Transmission Date: 20120928
  Serious: Yes (Other)
  Sender: FDA-Public Use
  Company Number: DE-ROCHE-1072988

PATIENT
  Age: 47 Year
  Sex: Female

DRUGS (4)
  1. FLUOXETINE HCL [Concomitant]
     Indication: DEPRESSION
     Route: 048
  2. DESLORATADINE [Concomitant]
     Indication: HYPERSENSITIVITY
     Route: 048
  3. MABTHERA [Suspect]
     Indication: MULTIPLE SCLEROSIS
     Route: 042
     Dates: start: 20090101
  4. DANTROLENE SODIUM [Concomitant]
     Indication: MUSCLE SPASTICITY
     Route: 048

REACTIONS (4)
  - BONE MARROW FAILURE [None]
  - ARTHRALGIA [None]
  - EOSINOPHILIC FASCIITIS [None]
  - CYTOKINE RELEASE SYNDROME [None]
